FAERS Safety Report 21190001 (Version 4)
Quarter: 2022Q3

REPORT INFORMATION
  Report Type: Report from Study
  Country: CA (occurrence: CA)
  Receive Date: 20220809
  Receipt Date: 20220929
  Transmission Date: 20221027
  Serious: Yes (Hospitalization, Other)
  Sender: FDA-Public Use
  Company Number: CA-BRISTOL-MYERS SQUIBB COMPANY-2022-085673

PATIENT
  Age: 76 Year
  Sex: Female
  Weight: 88 kg

DRUGS (1)
  1. OPDIVO [Suspect]
     Active Substance: NIVOLUMAB
     Indication: Gastric cancer
     Route: 042
     Dates: start: 20220714, end: 20220823

REACTIONS (4)
  - Malignant neoplasm progression [Not Recovered/Not Resolved]
  - Gastrointestinal disorder [Unknown]
  - Intentional product use issue [Unknown]
  - Nausea [Unknown]

NARRATIVE: CASE EVENT DATE: 20220714
